FAERS Safety Report 8374182-3 (Version None)
Quarter: 2012Q2

REPORT INFORMATION
  Report Type: 
  Country: None (occurrence: None)
  Receive Date: 20120521
  Receipt Date: 20120514
  Transmission Date: 20120825
  Serious: Yes (Hospitalization)
  Sender: FDA-Public Use
  Company Number: KR-GLAXOSMITHKLINE-B0802431A

PATIENT
  Age: 76 Year
  Sex: Male

DRUGS (2)
  1. ASTHMA MEDICATION [Concomitant]
     Indication: ASTHMA
     Route: 048
     Dates: start: 20090101
  2. FLUTICASONE PROPIONATE/SALMETEROL [Suspect]
     Indication: ASTHMA
     Route: 065
     Dates: start: 20090101, end: 20120401

REACTIONS (5)
  - PNEUMONIA [None]
  - DRY MOUTH [None]
  - SLEEP DISORDER [None]
  - VISION BLURRED [None]
  - CONSTIPATION [None]
